FAERS Safety Report 10515369 (Version 1)
Quarter: 2014Q4

REPORT INFORMATION
  Report Type: Other
  Country: GB (occurrence: GB)
  Receive Date: 20141014
  Receipt Date: 20141014
  Transmission Date: 20150528
  Serious: Yes (Death, Other)
  Sender: FDA-Public Use
  Company Number: GB-LUPIN PHARMACEUTICALS INC.-E2B_00002569

PATIENT
  Age: 75 Year
  Sex: Female

DRUGS (7)
  1. LEVOTHYROXINE SODIUM. [Concomitant]
     Active Substance: LEVOTHYROXINE SODIUM
     Route: 048
     Dates: start: 201308
  2. WARFARIN [Interacting]
     Active Substance: WARFARIN
     Indication: CEREBROVASCULAR ACCIDENT
     Dosage: AS PER INTERNATIONAL NORMALISED RATIO
     Route: 048
     Dates: start: 199703
  3. FUROSEMIDE. [Concomitant]
     Active Substance: FUROSEMIDE
     Indication: PRODUCT USED FOR UNKNOWN INDICATION
     Route: 065
  4. LEVOTHYROXINE SODIUM. [Concomitant]
     Active Substance: LEVOTHYROXINE SODIUM
     Indication: PRODUCT USED FOR UNKNOWN INDICATION
     Dosage: DOSE INCREASED FROM 100 MICROGRAMS
     Route: 048
     Dates: start: 201302, end: 201308
  5. ROSUVASTATIN [Concomitant]
     Active Substance: ROSUVASTATIN
     Indication: PRODUCT USED FOR UNKNOWN INDICATION
     Route: 065
  6. CEPHALEXIN. [Suspect]
     Active Substance: CEPHALEXIN
     Indication: KIDNEY INFECTION
     Route: 048
     Dates: start: 20130806
  7. BISOPROLOL [Concomitant]
     Active Substance: BISOPROLOL
     Indication: PRODUCT USED FOR UNKNOWN INDICATION
     Route: 065

REACTIONS (5)
  - International normalised ratio increased [Unknown]
  - Seizure [Unknown]
  - Subdural haemorrhage [Fatal]
  - Drug interaction [Fatal]
  - Muscle twitching [Not Recovered/Not Resolved]
